FAERS Safety Report 18212091 (Version 1)
Quarter: 2020Q3

REPORT INFORMATION
  Report Type: Spontaneous
  Country: US (occurrence: US)
  Receive Date: 20200831
  Receipt Date: 20200831
  Transmission Date: 20201103
  Serious: No
  Sender: FDA-Public Use
  Company Number: US-SA-2020SA221595

PATIENT

DRUGS (3)
  1. TOUJEO [Suspect]
     Active Substance: INSULIN GLARGINE
     Indication: TYPE 2 DIABETES MELLITUS
     Dosage: 42 IU, QD (NIGHT)
     Route: 065
     Dates: start: 2018
  2. TOUJEO [Suspect]
     Active Substance: INSULIN GLARGINE
     Dosage: 48 IU, QD (DOSE INCREASED)
     Route: 065
  3. METFORMIN [Concomitant]
     Active Substance: METFORMIN HYDROCHLORIDE
     Dosage: UNKNOWN
     Route: 065

REACTIONS (5)
  - Circumstance or information capable of leading to medication error [Unknown]
  - Hypertension [Unknown]
  - Device defective [Unknown]
  - Drug ineffective [Unknown]
  - Blood glucose increased [Unknown]

NARRATIVE: CASE EVENT DATE: 20200818
